FAERS Safety Report 11087059 (Version 1)
Quarter: 2015Q2

REPORT INFORMATION
  Report Type: Spontaneous
  Country: US (occurrence: US)
  Receive Date: 20150504
  Receipt Date: 20150504
  Transmission Date: 20150821
  Serious: No
  Sender: FDA-Public Use
  Company Number: US-GE HEALTHCARE MEDICAL DIAGNOSTICS-INOX-PR-1501S-0001

PATIENT

DRUGS (2)
  1. INDIUM IN111 OXINE [Suspect]
     Active Substance: INDIUM
     Indication: PRODUCT USED FOR UNKNOWN INDICATION
     Route: 042
     Dates: start: 20150108, end: 20150108
  2. INDIUM IN111 OXINE [Suspect]
     Active Substance: INDIUM
     Indication: DIAGNOSTIC PROCEDURE

REACTIONS (2)
  - Incorrect product storage [Recovered/Resolved]
  - No adverse event [None]

NARRATIVE: CASE EVENT DATE: 20150108
